FAERS Safety Report 24054202 (Version 1)
Quarter: 2024Q3

REPORT INFORMATION
  Report Type: Spontaneous
  Country: US (occurrence: US)
  Receive Date: 20240705
  Receipt Date: 20240705
  Transmission Date: 20241017
  Serious: No
  Sender: MERCK
  Company Number: US-009507513-2406USA002207

PATIENT
  Age: 57 Year
  Sex: Female

DRUGS (1)
  1. NOXAFIL [Suspect]
     Active Substance: POSACONAZOLE
     Indication: Haemophagocytic lymphohistiocytosis
     Dosage: UNK
     Route: 048

REACTIONS (1)
  - Off label use [Unknown]
